FAERS Safety Report 15362400 (Version 2)
Quarter: 2018Q4

REPORT INFORMATION
  Report Type: Spontaneous
  Country: GB (occurrence: GB)
  Receive Date: 20180907
  Receipt Date: 20181001
  Transmission Date: 20190204
  Serious: Yes (Hospitalization)
  Sender: FDA-Public Use
  Company Number: GB-PFIZER INC-2018353591

PATIENT
  Age: 32 Year
  Sex: Female

DRUGS (9)
  1. CALCIUM CHLORIDE. [Suspect]
     Active Substance: CALCIUM CHLORIDE
     Indication: PARENTERAL NUTRITION
     Dosage: 4 TIMES DAILY
     Route: 051
  2. GLUCOSE 50% [Suspect]
     Active Substance: DEXTROSE
     Indication: PARENTERAL NUTRITION
     Dosage: 4 TIMES DAILY
     Route: 051
  3. MAGNESIUM SULPHATE [GLYCEROL;MAGNESIUM SULFATE;PHENOL] [Suspect]
     Active Substance: GLYCERIN\MAGNESIUM SULFATE\PHENOL
     Indication: PARENTERAL NUTRITION
     Dosage: 4 TIMES DAILY
     Route: 051
  4. ADDAMEL N [Suspect]
     Active Substance: CHROMIC CHLORIDE\CUPROUS CHLORIDE\FERRIC CHLORIDE\MANGANESE CHLORIDE\POTASSIUM IODIDE\SODIUM FLUORIDE\SODIUM MOLYBDATE DIHYDRATE\SODIUM SELENITE\ZINC CHLORIDE
     Indication: PARENTERAL NUTRITION
     Dosage: 4 TIMES DAILY
     Route: 051
  5. CERNEVIT [Suspect]
     Active Substance: VITAMINS
     Indication: PARENTERAL NUTRITION
     Dosage: 5 ML, 4X/DAY
     Route: 051
  6. SODIUM CHLORIDE. [Suspect]
     Active Substance: SODIUM CHLORIDE
     Indication: PARENTERAL NUTRITION
     Dosage: UNK UNK, 4X/DAY
     Route: 051
  7. WATER FOR INJECTION [Suspect]
     Active Substance: WATER
     Indication: PARENTERAL NUTRITION
     Dosage: 4 TIMES DAILY
     Route: 051
  8. AMINOVEN [Suspect]
     Active Substance: AMINO ACIDS
     Indication: PARENTERAL NUTRITION
     Dosage: 4 TIMES DAILY
     Route: 051
  9. POTASSIUM CHLORIDE 15% [Suspect]
     Active Substance: POTASSIUM CHLORIDE
     Indication: PARENTERAL NUTRITION
     Dosage: 4 TIMES DAILY
     Route: 051

REACTIONS (1)
  - Swelling [Unknown]

NARRATIVE: CASE EVENT DATE: 20180802
